FAERS Safety Report 15688336 (Version 2)
Quarter: 2019Q1

REPORT INFORMATION
  Report Type: Report from Study
  Country: CA (occurrence: CA)
  Receive Date: 20181205
  Receipt Date: 20190128
  Transmission Date: 20190417
  Serious: Yes (Hospitalization)
  Sender: FDA-Public Use
  Company Number: CA-BRISTOL-MYERS SQUIBB COMPANY-BMS-2018-112613

PATIENT
  Age: 65 Year
  Sex: Male

DRUGS (2)
  1. NIVOLUMAB [Suspect]
     Active Substance: NIVOLUMAB
     Indication: RENAL CELL CARCINOMA
     Dosage: 240 MG, Q3WK
     Route: 065
     Dates: start: 20181126
  2. YERVOY [Suspect]
     Active Substance: IPILIMUMAB
     Indication: RENAL CELL CARCINOMA
     Dosage: 80 MG, Q3WK
     Route: 065
     Dates: start: 20181126

REACTIONS (1)
  - Tremor [Recovered/Resolved]

NARRATIVE: CASE EVENT DATE: 20181126
